FAERS Safety Report 6527412-4 (Version None)
Quarter: 2010Q1

REPORT INFORMATION
  Report Type: 
  Country: None (occurrence: None)
  Receive Date: 20100105
  Receipt Date: 20091223
  Transmission Date: 20100710
  Serious: Yes (Disabling)
  Sender: FDA-Public Use
  Company Number: GB-WATSON-2009-11090

PATIENT

DRUGS (2)
  1. SIMVASTATIN [Suspect]
     Indication: DRUG USE FOR UNKNOWN INDICATION
     Dosage: 40 MG, DAILY
     Route: 048
     Dates: start: 20051101
  2. ITRACONAZOLE [Suspect]
     Indication: BRONCHOPULMONARY ASPERGILLOSIS
     Dosage: UNK
     Dates: start: 20051201

REACTIONS (9)
  - ABASIA [None]
  - ASPERGILLOMA [None]
  - BLOOD CREATINE PHOSPHOKINASE ABNORMAL [None]
  - DRUG INTERACTION [None]
  - MITOCHONDRIAL TOXICITY [None]
  - MYALGIA [None]
  - MYOPATHY [None]
  - POLYNEUROPATHY [None]
  - UBIQUINONE DECREASED [None]
